FAERS Safety Report 14442157 (Version 1)
Quarter: 2018Q1

REPORT INFORMATION
  Report Type: Spontaneous
  Country: US (occurrence: US)
  Receive Date: 20180125
  Receipt Date: 20180125
  Transmission Date: 20180509
  Serious: Yes (Other)
  Sender: FDA-Public Use
  Company Number: US-BAYER-2018-010801

PATIENT

DRUGS (2)
  1. ALKA-SELTZER PLUS SEVERE SINUS CONGESTION AND COUGH [Suspect]
     Active Substance: ACETAMINOPHEN\DEXTROMETHORPHAN HYDROBROMIDE\PHENYLEPHRINE HYDROCHLORIDE
     Indication: NASOPHARYNGITIS
  2. ALKA-SELTZER PLUS SEVERE SINUS CONGESTION AND COUGH [Suspect]
     Active Substance: ACETAMINOPHEN\DEXTROMETHORPHAN HYDROBROMIDE\PHENYLEPHRINE HYDROCHLORIDE
     Indication: HYPERSENSITIVITY
     Dosage: UNK
     Route: 048
     Dates: start: 20180115, end: 20180116

REACTIONS (5)
  - Pharmacophobia [Unknown]
  - Product use complaint [None]
  - Choking [Recovered/Resolved]
  - Choking [Not Recovered/Not Resolved]
  - Product packaging issue [None]

NARRATIVE: CASE EVENT DATE: 20180115
